FAERS Safety Report 17998607 (Version 2)
Quarter: 2021Q2

REPORT INFORMATION
  Report Type: Spontaneous
  Country: US (occurrence: US)
  Receive Date: 20200709
  Receipt Date: 20210623
  Transmission Date: 20210717
  Serious: No
  Sender: FDA-Public Use
  Company Number: US-GLENMARK PHARMACEUTICALS-2019GMK041865

PATIENT

DRUGS (1)
  1. MOMETASONE FUROATE CREAM USP, 0.1% [Suspect]
     Active Substance: MOMETASONE FUROATE
     Indication: RASH
     Dosage: UNK, (2 OR 3 TIMES A WEEK)
     Route: 061
     Dates: start: 2019

REACTIONS (5)
  - Product physical consistency issue [Unknown]
  - No adverse event [Unknown]
  - Intentional dose omission [Unknown]
  - Contraindicated product administered [Unknown]
  - Product use issue [Unknown]

NARRATIVE: CASE EVENT DATE: 2019
